FAERS Safety Report 25352619 (Version 8)
Quarter: 2025Q3

REPORT INFORMATION
  Report Type: Spontaneous
  Country: US (occurrence: US)
  Receive Date: 20250523
  Receipt Date: 20250912
  Transmission Date: 20251021
  Serious: No
  Sender: PFIZER
  Company Number: US-PFIZER INC-202500104582

PATIENT
  Age: 15 Year
  Sex: Male
  Weight: 49.887 kg

DRUGS (2)
  1. GENOTROPIN [Suspect]
     Active Substance: SOMATROPIN
     Indication: Growth disorder
     Dosage: 2.3 MG/DAY, 7 DAYS/WEEK
     Route: 058
     Dates: start: 20250312
  2. GENOTROPIN [Suspect]
     Active Substance: SOMATROPIN
     Indication: Short stature
     Dosage: 2.4 MG, ONCE DAILY AT NIGHT/ EVERY NIGHT
     Route: 058
     Dates: start: 20250314

REACTIONS (3)
  - Product prescribing error [Unknown]
  - Poor quality device used [Unknown]
  - Device mechanical issue [Unknown]

NARRATIVE: CASE EVENT DATE: 20250301
